FAERS Safety Report 8609319-1 (Version None)
Quarter: 2012Q3

REPORT INFORMATION
  Report Type: 
  Country: None (occurrence: None)
  Receive Date: 20120821
  Receipt Date: 20120815
  Transmission Date: 20120928
  Serious: Yes (Hospitalization)
  Sender: FDA-Public Use
  Company Number: PHHY2012BR050155

PATIENT
  Sex: Female

DRUGS (5)
  1. ONBREZ [Suspect]
     Dosage: 300 UG, UNK
  2. CITALOPRAM HYDROBROMIDE [Concomitant]
     Indication: DEPRESSION
     Dosage: 1 DF, QD
  3. ATROVENT [Concomitant]
     Indication: LUNG DISORDER
  4. OMEPRAZOLE [Concomitant]
     Dosage: 1 DF, QD
     Dates: start: 20120601
  5. ONBREZ [Suspect]
     Indication: CHRONIC OBSTRUCTIVE PULMONARY DISEASE
     Dosage: 150 UG, QD
     Dates: start: 20120401

REACTIONS (2)
  - RESPIRATORY DISORDER [None]
  - LUNG INFECTION [None]
